FAERS Safety Report 20347804 (Version 2)
Quarter: 2022Q1

REPORT INFORMATION
  Report Type: Report from Study
  Country: GB (occurrence: GB)
  Receive Date: 20220118
  Receipt Date: 20220125
  Transmission Date: 20220423
  Serious: Yes (Other)
  Sender: FDA-Public Use
  Company Number: GB-GILEAD-2022-0565543

PATIENT
  Age: 8 Year
  Sex: Male

DRUGS (10)
  1. REMDESIVIR [Suspect]
     Active Substance: REMDESIVIR
     Indication: COVID-19 pneumonia
     Dosage: 155 MG, STAT DOSE 5MG/KG
     Route: 042
     Dates: start: 20220103, end: 20220103
  2. REMDESIVIR [Suspect]
     Active Substance: REMDESIVIR
     Dosage: 75 MG, 2.5MG/KG DAYS 2-5
     Route: 042
     Dates: start: 20220104, end: 20220107
  3. AZITHROMYCIN [Concomitant]
     Active Substance: AZITHROMYCIN
     Dosage: 200MG MON/WED/FRI
  4. VITAMINS [Concomitant]
     Active Substance: VITAMINS
     Dosage: 0.6ML OD
  5. BOSENTAN [Concomitant]
     Active Substance: BOSENTAN
     Dosage: 62.5MG BD
  6. SILDENAFIL [Concomitant]
     Active Substance: SILDENAFIL
     Dosage: 20MG TDS
  7. LANSOPRAZOLE [Concomitant]
     Active Substance: LANSOPRAZOLE
     Dosage: 15MG OD
  8. TINZAPARIN [Concomitant]
     Active Substance: TINZAPARIN
     Dosage: 1500UNITS OD 3-7TH JAN
  9. CEFTRIAXONE [Concomitant]
     Active Substance: CEFTRIAXONE
     Dosage: 3.1G 3-7TH JAN
  10. OXYGEN [Concomitant]
     Active Substance: OXYGEN

REACTIONS (1)
  - Amylase increased [Not Recovered/Not Resolved]

NARRATIVE: CASE EVENT DATE: 20220104
